FAERS Safety Report 7836468-8 (Version None)
Quarter: 2011Q4

REPORT INFORMATION
  Report Type: 
  Country: None (occurrence: None)
  Receive Date: 20111024
  Receipt Date: 20110721
  Transmission Date: 20120403
  Serious: No
  Sender: FDA-Public Use
  Company Number: US-BAYER-2011-064758

PATIENT
  Sex: Female
  Weight: 70 kg

DRUGS (3)
  1. HIGH BLOOD PRESSURE MEDICATION [Concomitant]
     Dosage: UNK
  2. FEMARA [Concomitant]
     Dosage: UNK
     Route: 048
  3. ALEVE (CAPLET) [Suspect]
     Indication: ANALGESIC THERAPY
     Dosage: 2 TABLETS AS NEEDED
     Route: 048

REACTIONS (1)
  - POOR QUALITY SLEEP [None]
